FAERS Safety Report 6816516-4 (Version None)
Quarter: 2010Q3

REPORT INFORMATION
  Report Type: 
  Country: None (occurrence: None)
  Receive Date: 20100706
  Receipt Date: 20100311
  Transmission Date: 20110219
  Serious: Yes (Hospitalization)
  Sender: FDA-Public Use
  Company Number: US-ASTRAZENECA-2006UW15780

PATIENT
  Age: 12028 Day
  Sex: Female
  Weight: 156 kg

DRUGS (12)
  1. SEROQUEL [Suspect]
     Indication: INSOMNIA
     Route: 048
     Dates: start: 20030519, end: 20040421
  2. SEROQUEL [Suspect]
     Route: 048
     Dates: start: 20040421
  3. RISPERDAL [Concomitant]
     Dates: start: 19980101
  4. WELLBUTRIN XL [Concomitant]
     Indication: SCHIZOPHRENIA
     Dates: start: 19980101
  5. WELLBUTRIN XL [Concomitant]
     Indication: DEPRESSION
     Dates: start: 19980101
  6. STRATTERA [Concomitant]
     Indication: ATTENTION DEFICIT/HYPERACTIVITY DISORDER
     Dates: start: 19980101
  7. BENICAR [Concomitant]
     Indication: HYPERTENSION
     Dates: start: 20000101
  8. SYNTHROID [Concomitant]
     Indication: HYPOTHYROIDISM
     Dates: start: 19970101
  9. CRESTOR [Concomitant]
     Indication: BLOOD CHOLESTEROL INCREASED
     Dates: start: 20000101
  10. ZOCOR [Concomitant]
     Dosage: 40 TO 80 MG
     Route: 048
     Dates: start: 20040802
  11. ALTACE [Concomitant]
     Route: 048
     Dates: start: 20041231
  12. MAXZIDE [Concomitant]
     Route: 048
     Dates: start: 20041231

REACTIONS (6)
  - ANXIETY [None]
  - BLINDNESS [None]
  - DEPRESSION [None]
  - TYPE 2 DIABETES MELLITUS [None]
  - URINARY TRACT INFECTION [None]
  - WEIGHT INCREASED [None]
